FAERS Safety Report 5425677-3 (Version None)
Quarter: 2007Q3

REPORT INFORMATION
  Report Type: 
  Country: None (occurrence: None)
  Receive Date: 20070824
  Receipt Date: 20070814
  Transmission Date: 20080115
  Serious: Yes (Other)
  Sender: FDA-Public Use
  Company Number: US-PFIZER INC-2007068344

PATIENT
  Sex: Male
  Weight: 101.6 kg

DRUGS (2)
  1. NEURONTIN [Suspect]
     Indication: CONVULSION
     Route: 048
  2. NEURONTIN [Suspect]
     Indication: DIABETIC NEUROPATHY

REACTIONS (3)
  - ACCIDENT [None]
  - DIABETIC NEUROPATHY [None]
  - LIMB INJURY [None]
